FAERS Safety Report 13517828 (Version 1)
Quarter: 2017Q2

REPORT INFORMATION
  Report Type: Spontaneous
  Country: None (occurrence: US)
  Receive Date: 20170505
  Receipt Date: 20170505
  Transmission Date: 20170830
  Serious: No
  Sender: FDA-Public Use
  Company Number: US-MORTON GROVE PHARMACEUTICALS, INC.-2020264

PATIENT
  Sex: Male

DRUGS (7)
  1. FLOVENT HFA [Concomitant]
     Active Substance: FLUTICASONE PROPIONATE
  2. PREVACID [Concomitant]
     Active Substance: LANSOPRAZOLE
  3. CLONAZEPAM. [Concomitant]
     Active Substance: CLONAZEPAM
  4. CARBAMAZEPINE. [Suspect]
     Active Substance: CARBAMAZEPINE
  5. EES SUSPENSION [Concomitant]
  6. SINGULAIR [Concomitant]
     Active Substance: MONTELUKAST SODIUM
  7. VALIUM [Concomitant]
     Active Substance: DIAZEPAM

REACTIONS (1)
  - Drug ineffective [None]
